FAERS Safety Report 6736944-5 (Version None)
Quarter: 2010Q2

REPORT INFORMATION
  Report Type: 
  Country: None (occurrence: None)
  Receive Date: 20100522
  Receipt Date: 20100511
  Transmission Date: 20101027
  Serious: Yes (Hospitalization)
  Sender: FDA-Public Use
  Company Number: US-JNJFOC-20100504520

PATIENT
  Age: 4 Year
  Weight: 16.78 kg

DRUGS (5)
  1. CHILDREN'S MOTRIN [Suspect]
     Indication: PYREXIA
     Dosage: ALTERNATING EVERY 3-3.5 HOURS
     Route: 048
  2. CHILDREN'S MOTRIN [Suspect]
     Indication: EAR INFECTION
     Dosage: ALTERNATING EVERY 3-3.5 HOURS
     Route: 048
  3. CHILDREN'S TYLENOL LIQUID BUBBLEGUM [Suspect]
     Indication: PYREXIA
     Route: 048
  4. CHILDREN'S TYLENOL LIQUID BUBBLEGUM [Suspect]
     Indication: EAR INFECTION
     Route: 048
  5. AMOXICILLIN [Concomitant]
     Indication: EAR PAIN

REACTIONS (6)
  - JOINT SWELLING [None]
  - LIP SWELLING [None]
  - OEDEMA PERIPHERAL [None]
  - PRODUCT QUALITY ISSUE [None]
  - PYREXIA [None]
  - RASH [None]
